FAERS Safety Report 6035168-7 (Version None)
Quarter: 2009Q1

REPORT INFORMATION
  Report Type: 
  Country: None (occurrence: None)
  Receive Date: 20090112
  Receipt Date: 20090107
  Transmission Date: 20090719
  Serious: Yes (Death, Hospitalization)
  Sender: FDA-Public Use
  Company Number: ZA-B.I. PHARMACEUTICALS,INC./RIDGEFIELD-2009-BP-00137BP

PATIENT
  Age: 22 Year
  Sex: Female

DRUGS (5)
  1. VIRAMUNE [Suspect]
     Indication: HIV INFECTION
     Dates: start: 20080724
  2. VIRAMUNE [Suspect]
     Dates: start: 20061003, end: 20070424
  3. COMBIVIR [Suspect]
     Indication: HIV INFECTION
     Dates: start: 20080724
  4. COMBIVIR [Suspect]
     Dates: start: 20061003, end: 20070424
  5. ALUVIA [Suspect]
     Indication: HIV INFECTION
     Dates: start: 20061003, end: 20070424

REACTIONS (5)
  - BLOOD AMYLASE INCREASED [None]
  - DIARRHOEA [None]
  - HEPATIC FAILURE [None]
  - RENAL FAILURE ACUTE [None]
  - VOMITING [None]
